FAERS Safety Report 5904240-1 (Version None)
Quarter: 2008Q3

REPORT INFORMATION
  Report Type: 
  Country: None (occurrence: None)
  Receive Date: 20080909
  Receipt Date: 20071121
  Transmission Date: 20090109
  Serious: Yes (Other)
  Sender: FDA-Public Use
  Company Number: 163-20785-07111417

PATIENT
  Age: 58 Year
  Sex: Female

DRUGS (9)
  1. THALOMID [Suspect]
     Indication: POST THROMBOTIC SYNDROME
     Dosage: 100 MG, QHS, ORAL
     Route: 048
     Dates: start: 20070911, end: 20070918
  2. DANAZOL [Concomitant]
  3. PREVACID [Concomitant]
  4. OXYCONTIN [Concomitant]
  5. LYRICA [Concomitant]
  6. DIAZEPAM [Concomitant]
  7. PREDNISONE [Concomitant]
  8. LIDOCAINE (LIDOCAINE) (OINTMENT) [Concomitant]
  9. CARMOL HC (UREA) (CREAM) [Concomitant]

REACTIONS (1)
  - SUICIDAL IDEATION [None]
